FAERS Safety Report 16198881 (Version 1)
Quarter: 2019Q2

REPORT INFORMATION
  Report Type: Spontaneous
  Country: JP (occurrence: JP)
  Receive Date: 20190415
  Receipt Date: 20190415
  Transmission Date: 20190711
  Serious: Yes (Other)
  Sender: FDA-Public Use
  Company Number: PHJP2019JP004274

PATIENT
  Age: 74 Year
  Sex: Male

DRUGS (1)
  1. NEORAL [Suspect]
     Active Substance: CYCLOSPORINE
     Indication: ECZEMA
     Dosage: UNK
     Route: 048

REACTIONS (3)
  - Product use in unapproved indication [Unknown]
  - Bladder cancer [Unknown]
  - Therapy non-responder [Unknown]
